FAERS Safety Report 4873228-4 (Version None)
Quarter: 2006Q1

REPORT INFORMATION
  Report Type: 
  Country: None (occurrence: None)
  Receive Date: 20060105
  Receipt Date: 20051031
  Transmission Date: 20060701
  Serious: Yes (Hospitalization, Other)
  Sender: FDA-Public Use
  Company Number: DE-MERCK-0511DEU00012

PATIENT
  Age: 53 Year
  Sex: Male
  Weight: 100 kg

DRUGS (3)
  1. VIOXX [Suspect]
     Indication: ANKYLOSING SPONDYLITIS
     Route: 048
     Dates: start: 20030101
  2. LEVOTHYROXINE SODIUM [Concomitant]
     Route: 048
  3. NITRENDIPINE [Concomitant]
     Route: 048

REACTIONS (8)
  - DRUG ADMINISTRATION ERROR [None]
  - GASTROINTESTINAL HAEMORRHAGE [None]
  - HEPATIC STEATOSIS [None]
  - HYPERLIPIDAEMIA [None]
  - HYPERTENSION [None]
  - HYPERURICAEMIA [None]
  - MYOCARDIAL INFARCTION [None]
  - OBESITY [None]
